FAERS Safety Report 7085738-2 (Version None)
Quarter: 2010Q4

REPORT INFORMATION
  Report Type: 
  Country: None (occurrence: None)
  Receive Date: 20101105
  Receipt Date: 20101028
  Transmission Date: 20110411
  Serious: Yes (Hospitalization)
  Sender: FDA-Public Use
  Company Number: DE-SANOFI-AVENTIS-2010SA065115

PATIENT
  Age: 70 Year
  Sex: Female

DRUGS (3)
  1. MULTAQ [Suspect]
     Route: 065
     Dates: start: 20100701
  2. HMG COA REDUCTASE INHIBITORS [Concomitant]
     Route: 065
  3. ANTIHYPERTENSIVES [Concomitant]
     Route: 065

REACTIONS (4)
  - CONDITION AGGRAVATED [None]
  - HEPATIC FAILURE [None]
  - LIVER FUNCTION TEST ABNORMAL [None]
  - OFF LABEL USE [None]
